FAERS Safety Report 6179023-0 (Version None)
Quarter: 2009Q2

REPORT INFORMATION
  Report Type: 
  Country: None (occurrence: None)
  Receive Date: 20090505
  Receipt Date: 20090424
  Transmission Date: 20091009
  Serious: Yes (Hospitalization, Other)
  Sender: FDA-Public Use
  Company Number: GB-JNJFOC-20090406087

PATIENT
  Age: 61 Year
  Sex: Male

DRUGS (13)
  1. REMICADE [Suspect]
     Indication: RHEUMATOID ARTHRITIS
     Route: 042
  2. ATORVASTATIN [Concomitant]
  3. NITROGLYCERIN [Concomitant]
  4. WARFARIN SODIUM [Concomitant]
  5. FOLIC ACID [Concomitant]
  6. METHOTREXATE [Concomitant]
     Route: 048
  7. PREDNISOLONE [Concomitant]
  8. PARACETAMOL [Concomitant]
  9. ASPIRIN [Concomitant]
  10. LANZOPRAZOLE [Concomitant]
  11. BISOPROLOL FUMARATE [Concomitant]
  12. RAMIPRIL [Concomitant]
  13. RISENDRONATE [Concomitant]

REACTIONS (4)
  - GLUCOSE TOLERANCE IMPAIRED [None]
  - MYOCARDIAL INFARCTION [None]
  - RHEUMATOID ARTHRITIS [None]
  - VENTRICULAR TACHYCARDIA [None]
